FAERS Safety Report 18716868 (Version 1)
Quarter: 2021Q1

REPORT INFORMATION
  Report Type: Spontaneous
  Country: US (occurrence: US)
  Receive Date: 20210107
  Receipt Date: 20210107
  Transmission Date: 20210419
  Serious: Yes (Life-Threatening, Hospitalization)
  Sender: FDA-Public Use
  Company Number: None

PATIENT
  Age: 81 Year
  Sex: Male

DRUGS (2)
  1. ASPIRIN (ASPIRIN 81MG TAB, EC) [Suspect]
     Active Substance: ASPIRIN
     Indication: CORONARY ARTERIAL STENT INSERTION
     Route: 048
     Dates: start: 20050406
  2. WARFARIN (WARFARIN NA (EXELAN) 2MG TAB) [Suspect]
     Active Substance: WARFARIN SODIUM
     Indication: ATRIAL FIBRILLATION
     Route: 048
     Dates: start: 20091230

REACTIONS (12)
  - Headache [None]
  - Muscular weakness [None]
  - Intraventricular haemorrhage [None]
  - Internal haemorrhage [None]
  - Cerebral haemorrhage [None]
  - Dilatation ventricular [None]
  - Ocular discomfort [None]
  - Vomiting [None]
  - Asthenia [None]
  - Dysmetria [None]
  - Fall [None]
  - Eye discharge [None]

NARRATIVE: CASE EVENT DATE: 20210104
